FAERS Safety Report 4386397-X (Version None)
Quarter: 2004Q2

REPORT INFORMATION
  Report Type: 
  Country: None (occurrence: None)
  Receive Date: 20040623
  Receipt Date: 20040614
  Transmission Date: 20050107
  Serious: Yes (Hospitalization)
  Sender: FDA-Public Use
  Company Number: 2004040095

PATIENT
  Age: 68 Year
  Sex: Female

DRUGS (2)
  1. TAHOR (ATORVASTATIN) [Suspect]
     Indication: ILL-DEFINED DISORDER
     Dosage: 10 MG (1 IN 1 D), ORAL
     Route: 048
     Dates: start: 20020915, end: 20030915
  2. IRBESARTAN (IRBESARTAN) [Concomitant]

REACTIONS (6)
  - BLOOD CREATINE PHOSPHOKINASE INCREASED [None]
  - ELECTROMYOGRAM ABNORMAL [None]
  - MUSCLE DISORDER [None]
  - MUSCLE FATIGUE [None]
  - MUSCLE NECROSIS [None]
  - MUSCULAR WEAKNESS [None]
